FAERS Safety Report 17857990 (Version 1)
Quarter: 2020Q2

REPORT INFORMATION
  Report Type: Spontaneous
  Country: CA (occurrence: CA)
  Receive Date: 20200604
  Receipt Date: 20200604
  Transmission Date: 20200714
  Serious: Yes (Other)
  Sender: FDA-Public Use
  Company Number: CA-ROCHE-2612745

PATIENT
  Age: 45 Year
  Sex: Male

DRUGS (6)
  1. VALPROATE SEMISODIUM [Concomitant]
     Active Substance: DIVALPROEX SODIUM
     Route: 065
  2. NYTOL [Suspect]
     Active Substance: DIPHENHYDRAMINE HYDROCHLORIDE
     Route: 048
  3. CLOZAPINE. [Suspect]
     Active Substance: CLOZAPINE
     Indication: PRODUCT USED FOR UNKNOWN INDICATION
     Route: 065
  4. CLONAZEPAM. [Suspect]
     Active Substance: CLONAZEPAM
     Indication: PRODUCT USED FOR UNKNOWN INDICATION
     Route: 065
  5. NYTOL [Suspect]
     Active Substance: DIPHENHYDRAMINE HYDROCHLORIDE
     Indication: PRODUCT USED FOR UNKNOWN INDICATION
     Route: 065
  6. GABAPENTIN. [Interacting]
     Active Substance: GABAPENTIN
     Indication: PRODUCT USED FOR UNKNOWN INDICATION
     Route: 065

REACTIONS (8)
  - Drug withdrawal syndrome [Recovered/Resolved]
  - Overdose [Unknown]
  - Leukopenia [Recovered/Resolved]
  - Neutrophil count decreased [Recovered/Resolved]
  - Drug interaction [Recovered/Resolved]
  - Toxicity to various agents [Recovered/Resolved]
  - Neutropenia [Recovered/Resolved]
  - White blood cell count decreased [Recovered/Resolved]
